FAERS Safety Report 4968643-4 (Version None)
Quarter: 2006Q2

REPORT INFORMATION
  Report Type: 
  Country: None (occurrence: None)
  Receive Date: 20060405
  Receipt Date: 20060320
  Transmission Date: 20061013
  Serious: Yes (Disabling)
  Sender: FDA-Public Use
  Company Number: DSA_27934_2006

PATIENT
  Age: 39 Year
  Sex: Male

DRUGS (11)
  1. LORAZEPAM [Suspect]
     Dosage: 7.5 MG Q DAY PO
     Route: 048
     Dates: start: 20051221, end: 20051228
  2. LORAZEPAM [Suspect]
     Dosage: VAR Q DAY PO
     Route: 048
     Dates: start: 20051229, end: 20060111
  3. LORAZEPAM [Suspect]
     Dosage: 4.5 MG Q DAY PO
     Route: 048
     Dates: start: 20051220, end: 20051220
  4. LORAZEPAM [Suspect]
     Dosage: 3.5 MG Q DAY PO
     Route: 048
     Dates: start: 20051219, end: 20051219
  5. ZYPREXA [Suspect]
     Dosage: 15 MG Q DAY PO
     Route: 048
     Dates: start: 20051219, end: 20060103
  6. ZYPREXA [Suspect]
     Dosage: 20 MG Q DAY PO
     Route: 048
     Dates: start: 20060104, end: 20060110
  7. ZYPREXA [Suspect]
     Dosage: 15 MG Q DAY PO
     Route: 048
     Dates: start: 20060111, end: 20060114
  8. ZYPREXA [Suspect]
     Dosage: 10 MG Q DAY PO
     Route: 048
     Dates: start: 20060115, end: 20060116
  9. ZYPREXA [Suspect]
     Dosage: 5 MG Q DAY PO
     Route: 048
     Dates: start: 20060117, end: 20060117
  10. ZYPREXA [Suspect]
     Dosage: 10 MG Q DAY PO
     Route: 048
     Dates: start: 20051217, end: 20051218
  11. EUNERPAN [Concomitant]

REACTIONS (3)
  - BODY MASS INDEX INCREASED [None]
  - INCREASED APPETITE [None]
  - WEIGHT INCREASED [None]
